FAERS Safety Report 8612605 (Version 2)
Quarter: 2012Q4

REPORT INFORMATION
  Report Type: Report from Study
  Country: ES (occurrence: ES)
  Receive Date: 20120613
  Receipt Date: 20121126
  Transmission Date: 20130627
  Serious: Yes (Other)
  Sender: FDA-Public Use
  Company Number: ES-ROCHE-686509

PATIENT
  Sex: Female

DRUGS (8)
  1. RITUXIMAB [Suspect]
     Indication: PULMONARY AMYLOIDOSIS
     Dosage: OTHER INDICATION: SYSTEMIC LUPUS ERYTHEMATOSUS
     Route: 042
     Dates: start: 200704, end: 200804
  2. GENOXAL [Concomitant]
     Indication: PULMONARY AMYLOIDOSIS
     Dosage: OTHER INDICATION: SYSTEMIC LUPUS ERYTHEMATOSUS. DAY 1 AND 15 OF EACH CYCLE. FOR 1 MONTH/6 MONTH
     Route: 042
     Dates: start: 200704, end: 200804
  3. HYDROXYCHLOROQUINE [Concomitant]
     Route: 065
  4. AZATHIOPRINE [Concomitant]
     Route: 065
  5. DEFLAZACORT [Concomitant]
  6. ACETYLSALICYLIC ACID [Concomitant]
  7. OMEPRAZOLE [Concomitant]
     Route: 065
  8. FERPLEX [Concomitant]

REACTIONS (2)
  - Progressive multifocal leukoencephalopathy [Unknown]
  - Hypoaesthesia [Unknown]
